FAERS Safety Report 16859499 (Version 1)
Quarter: 2019Q3

REPORT INFORMATION
  Report Type: Spontaneous
  Country: US (occurrence: US)
  Receive Date: 20190927
  Receipt Date: 20190927
  Transmission Date: 20191005
  Serious: No
  Sender: FDA-Public Use
  Company Number: US-BRISTOL-MYERS SQUIBB COMPANY-BMS-2019-093697

PATIENT
  Age: 73 Year
  Sex: Female
  Weight: 57.33 kg

DRUGS (2)
  1. NORVASC [Concomitant]
     Active Substance: AMLODIPINE BESYLATE
     Indication: PRODUCT USED FOR UNKNOWN INDICATION
     Dosage: 5 MILLIGRAM, DAILY
     Route: 065
  2. PRAVACHOL [Suspect]
     Active Substance: PRAVASTATIN SODIUM
     Indication: BLOOD CHOLESTEROL
     Dosage: 20 MILLIGRAM, QD
     Route: 048

REACTIONS (7)
  - Headache [Unknown]
  - Stress [Unknown]
  - Eructation [Unknown]
  - Product storage error [Unknown]
  - Oropharyngeal discomfort [Unknown]
  - Dyspepsia [Unknown]
  - Weight decreased [Unknown]

NARRATIVE: CASE EVENT DATE: 201909
